FAERS Safety Report 24296818 (Version 3)
Quarter: 2025Q2

REPORT INFORMATION
  Report Type: Spontaneous
  Country: CA (occurrence: CA)
  Receive Date: 20240909
  Receipt Date: 20250416
  Transmission Date: 20250716
  Serious: Yes (Other)
  Sender: CELLTRION
  Company Number: CA-PFIZER INC-202300186413

PATIENT

DRUGS (9)
  1. INFLECTRA [Suspect]
     Active Substance: INFLIXIMAB-DYYB
     Indication: Crohn^s disease
     Route: 042
     Dates: start: 20230607
  2. INFLECTRA [Suspect]
     Active Substance: INFLIXIMAB-DYYB
     Route: 042
     Dates: start: 20230620
  3. INFLECTRA [Suspect]
     Active Substance: INFLIXIMAB-DYYB
     Route: 042
     Dates: start: 20240801
  4. INFLECTRA [Suspect]
     Active Substance: INFLIXIMAB-DYYB
     Route: 042
  5. APIXABAN [Concomitant]
     Active Substance: APIXABAN
  6. BISOPROLOL [Concomitant]
     Active Substance: BISOPROLOL
  7. CELECOXIB [Concomitant]
     Active Substance: CELECOXIB
  8. MOMETASONE [Concomitant]
     Active Substance: MOMETASONE
  9. PREGABALIN [Concomitant]
     Active Substance: PREGABALIN

REACTIONS (6)
  - Colitis [Not Recovered/Not Resolved]
  - Supraventricular tachycardia [Recovered/Resolved]
  - Condition aggravated [Not Recovered/Not Resolved]
  - Off label use [Unknown]
  - Off label use [Unknown]
  - Intentional product use issue [Unknown]

NARRATIVE: CASE EVENT DATE: 20230101
